FAERS Safety Report 21943149 (Version 1)
Quarter: 2023Q1

REPORT INFORMATION
  Report Type: Spontaneous
  Country: JP (occurrence: JP)
  Receive Date: 20230202
  Receipt Date: 20230202
  Transmission Date: 20230418
  Serious: Yes (Other)
  Sender: FDA-Public Use
  Company Number: JP-CHUGAI-2022051410

PATIENT
  Age: 8 Decade
  Sex: Male

DRUGS (1)
  1. TECENTRIQ [Suspect]
     Active Substance: ATEZOLIZUMAB
     Indication: Non-small cell lung cancer
     Route: 041

REACTIONS (9)
  - Post procedural pneumonia [Unknown]
  - Clostridium difficile infection [Unknown]
  - Sepsis [Unknown]
  - Respiratory failure [Unknown]
  - Chronic obstructive pulmonary disease [Unknown]
  - Oral candidiasis [Unknown]
  - Herpes zoster [Unknown]
  - Hepatitis C [Unknown]
  - Pyrexia [Recovered/Resolved]
